FAERS Safety Report 7500657-2 (Version None)
Quarter: 2011Q2

REPORT INFORMATION
  Report Type: 
  Country: None (occurrence: None)
  Receive Date: 20110524
  Receipt Date: 20110513
  Transmission Date: 20111010
  Serious: Yes (Hospitalization, Other)
  Sender: FDA-Public Use
  Company Number: US-MERCK-1102USA01219

PATIENT
  Age: 54 Year
  Sex: Female
  Weight: 63 kg

DRUGS (3)
  1. ESTROGENS (UNSPECIFIED) [Concomitant]
     Indication: HORMONE REPLACEMENT THERAPY
     Route: 048
     Dates: start: 19950101
  2. FOSAMAX [Suspect]
     Indication: OSTEOPOROSIS
     Route: 048
     Dates: start: 20020813, end: 20100520
  3. FOSAMAX [Suspect]
     Route: 048
     Dates: start: 20080101, end: 20090101

REACTIONS (33)
  - FEMUR FRACTURE [None]
  - TONSILLAR DISORDER [None]
  - MUSCLE SPASMS [None]
  - NECK PAIN [None]
  - MYALGIA [None]
  - HEADACHE [None]
  - VERTIGO [None]
  - INTERVERTEBRAL DISC DEGENERATION [None]
  - JOINT EFFUSION [None]
  - ANXIETY [None]
  - CATHETER SITE HAEMORRHAGE [None]
  - PALPITATIONS [None]
  - NERVOUSNESS [None]
  - LOW TURNOVER OSTEOPATHY [None]
  - DIZZINESS [None]
  - IRON DEFICIENCY ANAEMIA [None]
  - PRESYNCOPE [None]
  - BACK PAIN [None]
  - HEART RATE INCREASED [None]
  - GASTROOESOPHAGEAL REFLUX DISEASE [None]
  - HYPERTENSION [None]
  - VAGINAL HAEMORRHAGE [None]
  - BREAST CYST [None]
  - PAIN IN EXTREMITY [None]
  - BURSITIS [None]
  - PANIC DISORDER [None]
  - OSTEOARTHRITIS [None]
  - FALL [None]
  - MALIGNANT BREAST LUMP REMOVAL [None]
  - OSTEOPENIA [None]
  - ARTHRALGIA [None]
  - TENDON DISORDER [None]
  - HYPERCHOLESTEROLAEMIA [None]
